FAERS Safety Report 20878156 (Version 2)
Quarter: 2022Q2

REPORT INFORMATION
  Report Type: Report from Study
  Country: AU (occurrence: AU)
  Receive Date: 20220526
  Receipt Date: 20220602
  Transmission Date: 20220720
  Serious: Yes (Hospitalization)
  Sender: FDA-Public Use
  Company Number: AU-PFIZER INC-202200732544

PATIENT
  Age: 67 Year
  Sex: Female
  Weight: 61.7 kg

DRUGS (5)
  1. ENCORAFENIB [Suspect]
     Active Substance: ENCORAFENIB
     Indication: Colorectal cancer metastatic
     Dosage: 225 MG, 1X/DAY
     Route: 048
     Dates: start: 20211117, end: 20220423
  2. CETUXIMAB [Suspect]
     Active Substance: CETUXIMAB
     Indication: Colorectal cancer metastatic
     Dosage: 870 MG, EVERY 2 WEEKS
     Route: 042
     Dates: start: 20211117, end: 20220414
  3. FLUOROURACIL [Suspect]
     Active Substance: FLUOROURACIL
     Indication: Colorectal cancer metastatic
     Dosage: 2775 MG, EVERY2 WEEKS
     Route: 042
     Dates: start: 20211117, end: 20220414
  4. OXALIPLATIN [Suspect]
     Active Substance: OXALIPLATIN
     Indication: Colorectal cancer metastatic
     Dosage: 70 MG, EVERY 2 WEEKS
     Route: 042
     Dates: start: 20211117, end: 20220414
  5. LEUCOVORIN CALCIUM [Suspect]
     Active Substance: LEUCOVORIN CALCIUM
     Indication: Colorectal cancer metastatic
     Dosage: 700 MG, CYCLIC
     Route: 042
     Dates: start: 20211117, end: 20220414

REACTIONS (1)
  - Cerebrovascular accident [Recovered/Resolved with Sequelae]

NARRATIVE: CASE EVENT DATE: 20220517
